FAERS Safety Report 11273427 (Version 1)
Quarter: 2015Q3

REPORT INFORMATION
  Report Type: Spontaneous
  Country: US (occurrence: None)
  Receive Date: 20150714
  Receipt Date: 20150714
  Transmission Date: 20151125
  Serious: No
  Sender: FDA-Public Use
  Company Number: None

PATIENT
  Age: 33 Year

DRUGS (1)
  1. MIRENA [Suspect]
     Active Substance: LEVONORGESTREL
     Indication: ENDOMETRIOSIS

REACTIONS (22)
  - Urticaria [None]
  - Alopecia [None]
  - Migraine [None]
  - Depression [None]
  - White blood cell count decreased [None]
  - Mood swings [None]
  - Pelvic pain [None]
  - Headache [None]
  - Dizziness [None]
  - Abdominal distension [None]
  - Arthralgia [None]
  - Nausea [None]
  - Pyrexia [None]
  - Liver disorder [None]
  - Loss of consciousness [None]
  - Night sweats [None]
  - Constipation [None]
  - Dry mouth [None]
  - Fatigue [None]
  - Concussion [None]
  - Blood potassium decreased [None]
  - Hot flush [None]

NARRATIVE: CASE EVENT DATE: 20150420
